FAERS Safety Report 24203302 (Version 1)
Quarter: 2024Q3

REPORT INFORMATION
  Report Type: Spontaneous
  Country: CN (occurrence: CN)
  Receive Date: 20240813
  Receipt Date: 20240813
  Transmission Date: 20241016
  Serious: Yes (Death, Hospitalization, Other)
  Sender: RISING PHARMACEUTICALS
  Company Number: CN-RISINGPHARMA-CN-2024RISLIT00280

PATIENT
  Age: 82 Year
  Sex: Female

DRUGS (16)
  1. FAMOTIDINE [Suspect]
     Active Substance: FAMOTIDINE
     Indication: Abdominal discomfort
     Route: 065
  2. QUETIAPINE FUMARATE [Suspect]
     Active Substance: QUETIAPINE FUMARATE
     Indication: Mental disorder
     Route: 065
  3. AMLODIPINE [Concomitant]
     Active Substance: AMLODIPINE BESYLATE
     Indication: Hypertension
     Route: 065
  4. ACETAMINOPHEN [Concomitant]
     Active Substance: ACETAMINOPHEN
     Route: 065
  5. FOLIC ACID [Concomitant]
     Active Substance: FOLIC ACID
     Indication: Anaemia
     Route: 065
  6. METHOXY POLYETHYLENE GLYCOL-EPOETIN BETA [Concomitant]
     Active Substance: METHOXY POLYETHYLENE GLYCOL-EPOETIN BETA
     Indication: Anaemia
     Route: 065
  7. FERROUS CITRATE [Concomitant]
     Active Substance: FERROUS CITRATE
     Indication: Anaemia
     Route: 065
  8. SODIUM BICARBONATE [Concomitant]
     Active Substance: SODIUM BICARBONATE
     Indication: Chronic kidney disease
     Route: 065
  9. TRAMADOL / ACETAMINOPHEN ORION [Concomitant]
     Route: 065
  10. FUROSEMIDE [Concomitant]
     Active Substance: FUROSEMIDE
     Indication: Generalised oedema
     Route: 065
  11. FUSIDIC ACID [Concomitant]
     Active Substance: FUSIDIC ACID
     Indication: Blister
     Route: 065
  12. SILVER SULFADIAZINE [Concomitant]
     Active Substance: SILVER SULFADIAZINE
     Route: 065
  13. CHLORHEXIDINE [Concomitant]
     Active Substance: CHLORHEXIDINE
     Route: 065
  14. BACITRACIN [Concomitant]
     Active Substance: BACITRACIN
     Route: 065
  15. NEOMYCIN [Concomitant]
     Active Substance: NEOMYCIN
     Route: 065
  16. POLYMYXIN B [Concomitant]
     Active Substance: POLYMYXIN B
     Route: 065

REACTIONS (2)
  - SJS-TEN overlap [Fatal]
  - Product use in unapproved indication [Unknown]
